FAERS Safety Report 5708351-5 (Version None)
Quarter: 2008Q2

REPORT INFORMATION
  Report Type: 
  Country: None (occurrence: None)
  Receive Date: 20080417
  Receipt Date: 20080411
  Transmission Date: 20081010
  Serious: Yes (Hospitalization)
  Sender: FDA-Public Use
  Company Number: AU-ASTRAZENECA-2008AP02690

PATIENT
  Age: 54 Year
  Sex: Female

DRUGS (3)
  1. NEXIUM [Suspect]
  2. VENTOLIN [Concomitant]
     Indication: ASTHMA
     Route: 055
  3. NEUROFEN PLUS [Concomitant]

REACTIONS (12)
  - DEHYDRATION [None]
  - DIARRHOEA [None]
  - DIZZINESS [None]
  - DRY MOUTH [None]
  - HEADACHE [None]
  - HYPOTENSION [None]
  - PARAESTHESIA [None]
  - PYREXIA [None]
  - RASH ERYTHEMATOUS [None]
  - THIRST [None]
  - TONIC CLONIC MOVEMENTS [None]
  - VOMITING [None]
